FAERS Safety Report 7608445-3 (Version None)
Quarter: 2011Q3

REPORT INFORMATION
  Report Type: 
  Country: None (occurrence: None)
  Receive Date: 20110714
  Receipt Date: 20110705
  Transmission Date: 20111222
  Serious: Yes (Other)
  Sender: FDA-Public Use
  Company Number: US-ELI_LILLY_AND_COMPANY-US201107002165

PATIENT
  Sex: Male

DRUGS (6)
  1. CYMBALTA [Suspect]
     Dosage: 60 MG, QD
     Dates: end: 20110601
  2. RESTORIL [Concomitant]
     Dosage: UNK
  3. MELOXICAM [Concomitant]
     Indication: BACK PAIN
     Dosage: 15 MG, QD
  4. CYMBALTA [Suspect]
     Indication: DEPRESSION
     Dosage: 30 MG, QD
     Dates: start: 20090301
  5. CYMBALTA [Suspect]
     Dosage: 30 MG, QD
     Route: 048
     Dates: start: 20110601
  6. CYMBALTA [Suspect]
     Dosage: 30 MG, QOD
     Route: 048
     Dates: end: 20110627

REACTIONS (10)
  - MENTAL IMPAIRMENT [None]
  - PANIC REACTION [None]
  - TINNITUS [None]
  - CATARACT OPERATION [None]
  - HYPOACUSIS [None]
  - CONFUSIONAL STATE [None]
  - BLEPHARITIS [None]
  - DRUG WITHDRAWAL SYNDROME [None]
  - INTENTIONAL DRUG MISUSE [None]
  - DIZZINESS [None]
